FAERS Safety Report 10388628 (Version 2)
Quarter: 2014Q3

REPORT INFORMATION
  Report Type: Spontaneous
  Country: US (occurrence: US)
  Receive Date: 20140815
  Receipt Date: 20140815
  Transmission Date: 20150326
  Serious: No
  Sender: FDA-Public Use
  Company Number: US-BAUSCH-BL-2013-005908

PATIENT
  Age: 63 Year
  Sex: Male

DRUGS (2)
  1. DORZOLAMIDE HYDROCHLORIDE OPHTHALMIC SOLUTION 2% [Suspect]
     Active Substance: DORZOLAMIDE HYDROCHLORIDE
     Indication: GLAUCOMA
     Dosage: 1 DROP IN RIGHT EYE
     Route: 047
     Dates: start: 2009
  2. LATANOPROST. [Concomitant]
     Active Substance: LATANOPROST

REACTIONS (3)
  - Instillation site pain [Recovered/Resolved]
  - Skin exfoliation [Recovered/Resolved]
  - Skin burning sensation [Recovered/Resolved]

NARRATIVE: CASE EVENT DATE: 201310
